FAERS Safety Report 9124549 (Version 1)
Quarter: 2013Q1

REPORT INFORMATION
  Report Type: Other
  Country: IT (occurrence: IT)
  Receive Date: 20130227
  Receipt Date: 20130227
  Transmission Date: 20140127
  Serious: Yes (Hospitalization)
  Sender: FDA-Public Use
  Company Number: IT-ACTELION-A-CH2013-79936

PATIENT
  Age: 60 Year
  Sex: Female

DRUGS (3)
  1. TRACLEER [Suspect]
     Indication: SKIN ULCER
     Dosage: 125 MG, BID
     Route: 048
  2. NIFEDIPINE [Concomitant]
     Dosage: 30 MG, UNK
     Route: 048
  3. ILOPROST [Concomitant]
     Dosage: 2 NG/KG, Q6HRS
     Route: 042

REACTIONS (7)
  - Scleroderma renal crisis [Recovered/Resolved]
  - Hypertension [Recovered/Resolved]
  - Proteinuria [Recovered/Resolved]
  - Haematuria [Recovered/Resolved]
  - Normochromic normocytic anaemia [Recovered/Resolved]
  - Haemolysis [Recovered/Resolved]
  - Blood creatinine increased [Recovered/Resolved]
